FAERS Safety Report 14213600 (Version 1)
Quarter: 2017Q4

REPORT INFORMATION
  Report Type: Report from Study
  Country: US (occurrence: US)
  Receive Date: 20171122
  Receipt Date: 20171122
  Transmission Date: 20180321
  Serious: No
  Sender: FDA-Public Use
  Company Number: PHEH2017US037464

PATIENT
  Sex: Male

DRUGS (1)
  1. GILENYA [Suspect]
     Active Substance: FINGOLIMOD HYDROCHLORIDE
     Indication: MULTIPLE SCLEROSIS
     Dosage: 0.5 MG, QD
     Route: 048
     Dates: start: 20170419

REACTIONS (5)
  - Limb discomfort [Not Recovered/Not Resolved]
  - Central nervous system lesion [Unknown]
  - Paraesthesia [Not Recovered/Not Resolved]
  - Depression [Recovering/Resolving]
  - Balance disorder [Not Recovered/Not Resolved]
